FAERS Safety Report 5390313-1 (Version None)
Quarter: 2007Q3

REPORT INFORMATION
  Report Type: 
  Country: None (occurrence: None)
  Receive Date: 20070718
  Receipt Date: 20070712
  Transmission Date: 20080115
  Serious: Yes (Hospitalization, Other)
  Sender: FDA-Public Use
  Company Number: US-ASTRAZENECA-2007UW16354

PATIENT
  Age: 82 Year
  Sex: Female
  Weight: 64.4 kg

DRUGS (6)
  1. SEROQUEL [Suspect]
     Indication: INSOMNIA
     Route: 048
  2. SEROQUEL [Suspect]
     Indication: AFFECTIVE DISORDER
     Route: 048
  3. RISPERDAL [Concomitant]
  4. LEVAQUIN [Concomitant]
  5. LEVAQUIN [Concomitant]
  6. MANY MORE MEDICATIONS [Concomitant]

REACTIONS (4)
  - AGITATION [None]
  - CHEST PAIN [None]
  - INSOMNIA [None]
  - URINARY TRACT INFECTION [None]
